FAERS Safety Report 17344886 (Version 1)
Quarter: 2020Q1

REPORT INFORMATION
  Report Type: Spontaneous
  Country: PL (occurrence: PL)
  Receive Date: 20200129
  Receipt Date: 20200129
  Transmission Date: 20200409
  Serious: Yes (Hospitalization, Other)
  Sender: FDA-Public Use
  Company Number: PHHY2019PL219739

PATIENT
  Age: 65 Year
  Sex: Female

DRUGS (10)
  1. FLUTICASONE. [Suspect]
     Active Substance: FLUTICASONE
     Indication: ASTHMA
     Dosage: 1000 UG, QD
     Route: 055
  2. ASPIRIN. [Suspect]
     Active Substance: ASPIRIN
     Indication: ASTHMA
     Dosage: 150 MG, UNK
     Route: 048
  3. ASPIRIN. [Suspect]
     Active Substance: ASPIRIN
     Dosage: 650 MG, QD
     Route: 048
  4. SALMETEROL [Suspect]
     Active Substance: SALMETEROL
     Indication: ASTHMA
     Dosage: DAILY
     Route: 065
     Dates: start: 200909
  5. ASPIRIN. [Suspect]
     Active Substance: ASPIRIN
     Dosage: 325 MG, BID
     Route: 048
  6. ASPIRIN. [Suspect]
     Active Substance: ASPIRIN
     Dosage: 300 CI/?G
     Route: 048
  7. MONTELUKAST [Concomitant]
     Active Substance: MONTELUKAST SODIUM
     Indication: PRODUCT USED FOR UNKNOWN INDICATION
     Route: 065
  8. MONTELUKAST SODIUM. [Suspect]
     Active Substance: MONTELUKAST SODIUM
     Indication: ASTHMA
     Dosage: 10 MILLIGRAM/DAY
     Route: 048
     Dates: start: 200909
  9. FLUTICASONE. [Suspect]
     Active Substance: FLUTICASONE
     Dosage: 27.5 UG, BID
     Route: 006
  10. FEXOFENADINE [Suspect]
     Active Substance: FEXOFENADINE HYDROCHLORIDE
     Indication: ASTHMA
     Dosage: 180 MG, QD
     Route: 065
     Dates: start: 200909

REACTIONS (4)
  - Concomitant disease aggravated [Unknown]
  - Drug-induced liver injury [Recovered/Resolved]
  - Chronic rhinosinusitis with nasal polyps [Unknown]
  - Asthma [Unknown]

NARRATIVE: CASE EVENT DATE: 201807
